FAERS Safety Report 8573987 (Version 7)
Quarter: 2013Q2

REPORT INFORMATION
  Report Type: Spontaneous
  Country: US (occurrence: US)
  Receive Date: 20120522
  Receipt Date: 20130429
  Transmission Date: 20140414
  Serious: Yes (Hospitalization, Disabling, Other)
  Sender: FDA-Public Use
  Company Number: US-009507513-1205USA02850

PATIENT
  Sex: Female
  Weight: 78.5 kg

DRUGS (11)
  1. FOSAMAX [Suspect]
     Indication: OSTEOPOROSIS
     Dosage: 10 MG, QD
     Route: 048
     Dates: start: 1998
  2. FOSAMAX [Suspect]
     Dosage: 70 MG, QW
     Route: 048
  3. ALENDRONATE SODIUM [Suspect]
     Indication: OSTEOPOROSIS
     Dosage: 70 MG, UNK
     Route: 048
  4. CALCIUM (UNSPECIFIED) [Concomitant]
     Indication: OSTEOPOROSIS
     Dosage: 1500 MG, UNK
  5. VITAMIN D (UNSPECIFIED) [Concomitant]
     Indication: OSTEOPOROSIS
  6. ASCORBIC ACID [Concomitant]
     Dosage: 500 MG, UNK
  7. GARLIC [Concomitant]
  8. VITAMINS (UNSPECIFIED) [Concomitant]
     Dosage: 1000 MG, UNK
  9. OMEGA-3 MARINE TRIGLYCERIDES [Concomitant]
  10. ASPIRIN [Concomitant]
     Indication: PRODUCT USED FOR UNKNOWN INDICATION
     Dosage: 81 MG, QD
  11. ZYRTEC [Concomitant]
     Indication: HYPERSENSITIVITY
     Dosage: UNK
     Dates: start: 20050713, end: 20050720

REACTIONS (40)
  - Stress fracture [Unknown]
  - Renal failure chronic [Not Recovered/Not Resolved]
  - Squamous cell carcinoma of skin [Unknown]
  - Osteoporosis [Unknown]
  - Low turnover osteopathy [Unknown]
  - Fall [Unknown]
  - Internal fixation of fracture [Recovering/Resolving]
  - Femur fracture [Unknown]
  - Tooth disorder [Unknown]
  - Osteopenia [Unknown]
  - Osteopenia [Unknown]
  - Diverticulum [Unknown]
  - Hiatus hernia [Unknown]
  - Rectocele [Unknown]
  - Cystocele [Unknown]
  - Colitis [Unknown]
  - Large intestine polyp [Unknown]
  - Helicobacter infection [Unknown]
  - Blood cholesterol increased [Unknown]
  - Hypertension [Unknown]
  - Aortic arteriosclerosis [Unknown]
  - Urinary incontinence [Unknown]
  - Varicose vein [Unknown]
  - Pulmonary mass [Unknown]
  - Helicobacter infection [Unknown]
  - Hyperlipidaemia [Unknown]
  - Hypertensive nephropathy [Unknown]
  - Vaginal prolapse [Unknown]
  - Dermatitis [Unknown]
  - Actinic keratosis [Unknown]
  - Cough [Recovered/Resolved]
  - Fracture [Unknown]
  - Osteoarthritis [Unknown]
  - Cough [Recovered/Resolved]
  - Cardiac murmur [Unknown]
  - Diarrhoea [Unknown]
  - Dizziness [Unknown]
  - Nausea [Unknown]
  - Oesophagitis [Unknown]
  - Gastrooesophageal reflux disease [Unknown]
